FAERS Safety Report 8365121-X (Version None)
Quarter: 2012Q2

REPORT INFORMATION
  Report Type: 
  Country: None (occurrence: None)
  Receive Date: 20120516
  Receipt Date: 20120508
  Transmission Date: 20120825
  Serious: Yes (Other)
  Sender: FDA-Public Use
  Company Number: US-ASTRAZENECA-2012SE29790

PATIENT
  Age: 39 Year
  Sex: Female

DRUGS (1)
  1. SYMBICORT [Suspect]
     Route: 055

REACTIONS (5)
  - SEIZURE LIKE PHENOMENA [None]
  - INTENTIONAL DRUG MISUSE [None]
  - OXYGEN SATURATION DECREASED [None]
  - ASTHMA [None]
  - GENERAL PHYSICAL HEALTH DETERIORATION [None]
